FAERS Safety Report 17220793 (Version 2)
Quarter: 2020Q1

REPORT INFORMATION
  Report Type: Spontaneous
  Country: IN (occurrence: US)
  Receive Date: 20191231
  Receipt Date: 20200113
  Transmission Date: 20200409
  Serious: Yes (Other)
  Sender: FDA-Public Use
  Company Number: IN-PFM-2019-15712

PATIENT
  Age: 36 Month
  Sex: Female

DRUGS (2)
  1. PROPRANOLOL [Suspect]
     Active Substance: PROPRANOLOL HYDROCHLORIDE
     Indication: INFANTILE HAEMANGIOMA
     Route: 048
  2. PROPRANOLOL [Suspect]
     Active Substance: PROPRANOLOL HYDROCHLORIDE
     Dosage: 1 MG/KG, UNK
     Route: 048

REACTIONS (6)
  - Cardiac disorder [Unknown]
  - Product administered to patient of inappropriate age [Unknown]
  - Respiratory disorder [Unknown]
  - Drug intolerance [Unknown]
  - Condition aggravated [Unknown]
  - Off label use [Unknown]
